FAERS Safety Report 21440350 (Version 1)
Quarter: 2022Q4

REPORT INFORMATION
  Report Type: Spontaneous
  Country: US (occurrence: US)
  Receive Date: 20221011
  Receipt Date: 20221011
  Transmission Date: 20230112
  Serious: No
  Sender: FDA-Public Use
  Company Number: US-AMNEAL PHARMACEUTICALS-2022-AMRX-02724

PATIENT
  Age: 50 Year
  Sex: Male

DRUGS (2)
  1. LIORESAL [Suspect]
     Active Substance: BACLOFEN
     Indication: Muscle spasticity
     Dosage: 840.7 ?G, \DAY
     Route: 037
     Dates: end: 20211214
  2. LIORESAL [Suspect]
     Active Substance: BACLOFEN
     Dosage: DOSE ADJUSTMENT (UNSPECIFIED)
     Route: 037
     Dates: start: 20211214

REACTIONS (2)
  - Therapeutic response changed [Not Recovered/Not Resolved]
  - Complication associated with device [Not Recovered/Not Resolved]

NARRATIVE: CASE EVENT DATE: 20211214
